FAERS Safety Report 6768846-2 (Version None)
Quarter: 2010Q2

REPORT INFORMATION
  Report Type: 
  Country: None (occurrence: None)
  Receive Date: 20100611
  Receipt Date: 20100528
  Transmission Date: 20101027
  Serious: Yes (Death, Hospitalization)
  Sender: FDA-Public Use
  Company Number: 1-22930290

PATIENT
  Age: 75 Year
  Sex: Female

DRUGS (4)
  1. FENTANYL PATCH 50 MCG/HR [Suspect]
     Indication: CANCER PAIN
     Dosage: 1200 MCG,
  2. MORPHINE [Concomitant]
  3. MIDAZOLAM [Concomitant]
  4. DEXAMETHASONE [Concomitant]

REACTIONS (4)
  - CONDITION AGGRAVATED [None]
  - DISCOMFORT [None]
  - DRUG EFFECT DECREASED [None]
  - ONCOLOGIC COMPLICATION [None]
